FAERS Safety Report 9174229 (Version 1)
Quarter: 2013Q1

REPORT INFORMATION
  Report Type: Spontaneous
  Country: GB (occurrence: GB)
  Receive Date: 20130320
  Receipt Date: 20130320
  Transmission Date: 20140127
  Serious: Yes (Other)
  Sender: FDA-Public Use
  Company Number: GB-PFIZER INC-2013089893

PATIENT
  Age: 32 Year
  Sex: Male
  Weight: 86.99 kg

DRUGS (1)
  1. VENLAFAXINE HYDROCHLORIDE [Suspect]
     Indication: INSOMNIA
     Dosage: 150 MG, 1X/DAY
     Dates: start: 2009

REACTIONS (2)
  - Periodic limb movement disorder [Recovered/Resolved]
  - Off label use [Unknown]
